FAERS Safety Report 25728717 (Version 1)
Quarter: 2025Q3

REPORT INFORMATION
  Report Type: Spontaneous
  Country: US (occurrence: US)
  Receive Date: 20250826
  Receipt Date: 20250826
  Transmission Date: 20251020
  Serious: Yes (Other)
  Sender: ELI LILLY AND COMPANY
  Company Number: US-ELI_LILLY_AND_COMPANY-US202508018798

PATIENT

DRUGS (1)
  1. MOUNJARO [Suspect]
     Active Substance: TIRZEPATIDE
     Indication: Product used for unknown indication
     Route: 065

REACTIONS (7)
  - Loss of consciousness [Unknown]
  - Blood pressure decreased [Unknown]
  - Limb injury [Unknown]
  - Escherichia urinary tract infection [Unknown]
  - Pneumonia [Unknown]
  - Dehydration [Unknown]
  - Vomiting [Unknown]
